FAERS Safety Report 8482951-4 (Version None)
Quarter: 2012Q3

REPORT INFORMATION
  Report Type: 
  Country: None (occurrence: None)
  Receive Date: 20120702
  Receipt Date: 20120622
  Transmission Date: 20120928
  Serious: Yes (Hospitalization, Other)
  Sender: FDA-Public Use
  Company Number: US-ASTRAZENECA-2010SE45013

PATIENT
  Age: 76 Year
  Sex: Female

DRUGS (11)
  1. VITAMIN E [Concomitant]
     Route: 048
  2. LOVASTATIN [Concomitant]
     Route: 048
  3. GABAPENTIN [Concomitant]
     Route: 048
  4. NEXIUM [Suspect]
     Route: 048
  5. LEXAPRO [Concomitant]
     Dosage: 1 DAILY
     Route: 048
  6. PREDNISOLONE [Concomitant]
     Route: 048
  7. FOLIC ACID [Concomitant]
     Route: 048
  8. VITAMIN B-12 [Concomitant]
     Dosage: MONTHLY
  9. CELEBREX [Concomitant]
     Route: 048
  10. METHOTREXATE [Concomitant]
  11. NEURONTIN [Concomitant]

REACTIONS (10)
  - RADIUS FRACTURE [None]
  - ULNA FRACTURE [None]
  - LIGAMENT INJURY [None]
  - MALAISE [None]
  - ACCIDENT [None]
  - MUSCLE STRAIN [None]
  - FALL [None]
  - JOINT EFFUSION [None]
  - PATELLA FRACTURE [None]
  - UPPER LIMB FRACTURE [None]
